FAERS Safety Report 26004504 (Version 1)
Quarter: 2025Q4

REPORT INFORMATION
  Report Type: Spontaneous
  Country: GB (occurrence: GB)
  Receive Date: 20251106
  Receipt Date: 20251106
  Transmission Date: 20260117
  Serious: Yes (Other)
  Sender: AUROBINDO
  Company Number: GB-MHRA-MED-202510260838283810-DNZFP

PATIENT
  Age: 69 Year
  Sex: Female
  Weight: 86 kg

DRUGS (1)
  1. ROSUVASTATIN [Suspect]
     Active Substance: ROSUVASTATIN
     Indication: Hypercholesterolaemia
     Dosage: 5 MILLIGRAM
     Route: 065
     Dates: start: 20250101, end: 20250304

REACTIONS (1)
  - Atrial fibrillation [Recovered/Resolved]

NARRATIVE: CASE EVENT DATE: 20250114
